FAERS Safety Report 21354772 (Version 2)
Quarter: 2022Q4

REPORT INFORMATION
  Report Type: Spontaneous
  Country: US (occurrence: US)
  Receive Date: 20220920
  Receipt Date: 20221007
  Transmission Date: 20230112
  Serious: No
  Sender: FDA-Public Use
  Company Number: US-INCYTE CORPORATION-2022IN008783

PATIENT

DRUGS (2)
  1. JAKAFI [Suspect]
     Active Substance: RUXOLITINIB
     Indication: Polycythaemia vera
     Dosage: 5 MILLIGRAM, QD
     Route: 048
     Dates: start: 20220528
  2. JAKAFI [Suspect]
     Active Substance: RUXOLITINIB
     Dosage: 5 MILLIGRAM, QD (HE IS TAKING IT IN THE EVENINGS WITH FOOD)
     Route: 048
     Dates: start: 202205

REACTIONS (4)
  - Heart rate irregular [Unknown]
  - Supraventricular tachycardia [Unknown]
  - Dizziness [Unknown]
  - Dyspnoea [Unknown]
